FAERS Safety Report 23896668 (Version 1)
Quarter: 2024Q2

REPORT INFORMATION
  Report Type: Spontaneous
  Country: PT (occurrence: PT)
  Receive Date: 20240524
  Receipt Date: 20240524
  Transmission Date: 20240716
  Serious: Yes (Life-Threatening)
  Sender: FDA-Public Use
  Company Number: None

PATIENT
  Age: 70 Year
  Sex: Female

DRUGS (1)
  1. ULTRAVIST [Suspect]
     Active Substance: IOPROMIDE
     Indication: Computerised tomogram thorax
     Dosage: UNK, ONCE
     Route: 042
     Dates: start: 202106, end: 202106

REACTIONS (12)
  - Drug hypersensitivity [Recovered/Resolved]
  - Angioedema [Recovered/Resolved]
  - Malaise [Recovered/Resolved]
  - Paraesthesia [Recovered/Resolved]
  - Cough [Recovered/Resolved]
  - Contrast media reaction [Recovered/Resolved]
  - Throat tightness [Recovered/Resolved]
  - Palmar erythema [Recovered/Resolved]
  - Sneezing [Recovered/Resolved]
  - Dyspnoea [Recovered/Resolved]
  - Rash [Recovered/Resolved]
  - Anaphylactic reaction [Recovered/Resolved]

NARRATIVE: CASE EVENT DATE: 20210601
